FAERS Safety Report 16397448 (Version 2)
Quarter: 2019Q4

REPORT INFORMATION
  Report Type: Report from Study
  Country: JP (occurrence: JP)
  Receive Date: 20190606
  Receipt Date: 20191223
  Transmission Date: 20200122
  Serious: Yes (Other)
  Sender: FDA-Public Use
  Company Number: JP-TEVA-2019-JP-1057867

PATIENT
  Age: 77 Year
  Sex: Male
  Weight: 67.1 kg

DRUGS (84)
  1. FILGRASTIM BS INJ. 150MCG SYRINGE [Suspect]
     Active Substance: FILGRASTIM
     Indication: INFANTILE GENETIC AGRANULOCYTOSIS
     Dosage: 100 UG/M2 DAILY;
     Route: 058
     Dates: start: 20161205, end: 20170111
  2. VIDAZA INJECTION [Concomitant]
     Indication: MYELODYSPLASTIC SYNDROME
     Route: 065
     Dates: start: 20161110, end: 20161118
  3. ALOXI INJECTION [Concomitant]
     Indication: PROPHYLAXIS
     Route: 065
     Dates: start: 20161110, end: 20161110
  4. SOLDEM 3A INJECTION [Concomitant]
     Indication: ELECTROLYTE SUBSTITUTION THERAPY
     Route: 065
     Dates: start: 20161201, end: 20170215
  5. ELNEOPA NO.2 INJECTION [Concomitant]
     Indication: EATING DISORDER
     Route: 065
     Dates: start: 20170111, end: 20170119
  6. FEXOFENADINE HYDROCHLORIDE. [Concomitant]
     Active Substance: FEXOFENADINE HYDROCHLORIDE
     Indication: PROPHYLAXIS
     Dates: start: 20161104, end: 20161117
  7. LECICARBON [Concomitant]
     Active Substance: SODIUM BICARBONATE\SODIUM PHOSPHATE, MONOBASIC
     Indication: CONSTIPATION
     Dates: start: 20161214, end: 20161221
  8. ZOPICLONE [Concomitant]
     Active Substance: ZOPICLONE
     Dates: start: 20161214, end: 20161224
  9. QUETIAPINE. [Concomitant]
     Active Substance: QUETIAPINE
     Dates: start: 20161228, end: 20170102
  10. KETOPROFEN TAPE [Concomitant]
     Indication: BACK PAIN
     Dates: start: 20170102, end: 20170102
  11. NAUZELIN [Concomitant]
     Active Substance: DOMPERIDONE
     Dates: start: 20170117, end: 20170123
  12. BIO-THREE [Concomitant]
     Active Substance: HERBALS
     Dates: start: 20170127, end: 20170130
  13. KIDMIN INJECTION [Concomitant]
     Indication: EATING DISORDER
     Route: 065
     Dates: start: 20161213, end: 20170123
  14. KIPRES [Concomitant]
     Active Substance: MONTELUKAST SODIUM
     Indication: ASTHMA
     Dates: start: 20161101, end: 20161103
  15. ASTOMIN [Concomitant]
     Active Substance: DIMEMORFAN
     Dates: start: 20161203, end: 20161207
  16. LEVOFLOXACIN HEMIHYDRATE [Concomitant]
     Active Substance: LEVOFLOXACIN
     Dates: start: 20170112, end: 20170125
  17. PRERAN [Concomitant]
     Active Substance: TRANDOLAPRIL
     Dates: start: 20170113, end: 20170219
  18. AMLODIPINE [Concomitant]
     Active Substance: AMLODIPINE BESYLATE
     Dates: start: 20170116, end: 20170219
  19. GOREISAN POWDER (EXCEPT [DPO]) [Concomitant]
     Dates: start: 20170123, end: 20170205
  20. MAGNESIUM SULFATE HYDRATE [Concomitant]
     Active Substance: MAGNESIUM SULFATE HEPTAHYDRATE
     Dates: start: 20170124, end: 20170126
  21. ASPARA POTASSIUM [Concomitant]
     Active Substance: POTASSIUM ASPARTATE
     Dates: start: 20170124, end: 20170126
  22. LACTEC [Concomitant]
     Active Substance: CALCIUM CHLORIDE ANHYDROUS\POTASSIUM CHLORIDE\SODIUM CHLORIDE\SODIUM LACTATE
     Dates: start: 20170208, end: 20170210
  23. DICLOFENAC SODIUM. [Concomitant]
     Active Substance: DICLOFENAC SODIUM
     Dates: start: 20170208, end: 20170212
  24. FUROSEMIDE. [Concomitant]
     Active Substance: FUROSEMIDE
     Indication: OEDEMA
     Dates: start: 20170221, end: 20170604
  25. SENNOSIDE [Concomitant]
     Active Substance: SENNOSIDES
     Indication: OEDEMA
     Dates: start: 20170316, end: 20170320
  26. FILGRASTIM BS INJ. 150MCG SYRINGE [Suspect]
     Active Substance: FILGRASTIM
     Dosage: 50 UG/M2 DAILY;
     Route: 058
     Dates: start: 20170207, end: 20170214
  27. BFLUID INJECTION [Concomitant]
     Active Substance: AMINO ACIDS\DEXTROSE\ELECTROLYTES NOS\VITAMINS
     Indication: HYPOPHAGIA
     Route: 065
     Dates: start: 20161208, end: 201612
  28. ACELIO INJECTION [Concomitant]
     Indication: PYREXIA
     Route: 065
     Dates: start: 20161208, end: 20161208
  29. CEFTRIAXONE SODIUM HYDRATE INJECTION [Concomitant]
     Indication: PNEUMONIA
     Route: 065
     Dates: start: 20161224, end: 20161229
  30. TALION OD [Concomitant]
     Active Substance: BEPOTASTINE BESYLATE
     Indication: ECZEMA
     Dates: start: 20161117, end: 20161207
  31. CALONAL [Concomitant]
     Active Substance: ACETAMINOPHEN
     Indication: OROPHARYNGEAL PAIN
     Dates: start: 20161202, end: 20161202
  32. PRIMPERAN [Concomitant]
     Active Substance: METOCLOPRAMIDE HYDROCHLORIDE
     Dates: start: 20161218, end: 20170213
  33. ERYTHROCIN [Concomitant]
     Active Substance: ERYTHROMYCIN LACTOBIONATE
     Dates: start: 20170107, end: 20170213
  34. CLEANAL [Concomitant]
     Active Substance: FUDOSTEINE
     Dates: start: 20170113, end: 20170130
  35. TAMSULOSIN HYDROCHLORIDE. [Concomitant]
     Active Substance: TAMSULOSIN HYDROCHLORIDE
     Dates: start: 20170127, end: 20170604
  36. WYSTAL [Concomitant]
     Active Substance: CEFOPERAZONE SODIUM\SULBACTAM SODIUM
     Dates: start: 20170207, end: 20170215
  37. URSODEOXYCHOLIC ACID [Concomitant]
     Active Substance: URSODIOL
     Dates: start: 20170208, end: 20170604
  38. FUROSEMIDE INJECTION [Concomitant]
     Active Substance: FUROSEMIDE
     Indication: OEDEMA
     Route: 065
     Dates: start: 20161225, end: 20170114
  39. MINOCYCLINE HYDROCHLORIDE INJECTION [Concomitant]
     Indication: PNEUMONIA
     Route: 065
     Dates: start: 20161229, end: 20170111
  40. CIPROFLOXACIN. [Concomitant]
     Active Substance: CIPROFLOXACIN
     Indication: PROPHYLAXIS
     Dates: start: 20161101, end: 20170205
  41. MAGNESIUM OXIDE. [Concomitant]
     Active Substance: MAGNESIUM OXIDE
     Indication: CONSTIPATION
     Dates: start: 20161117, end: 20170604
  42. APHTASOLON OINTMENT [Concomitant]
     Indication: STOMATITIS
     Dates: start: 20161202, end: 20161202
  43. SOLDEM 1 [Concomitant]
     Active Substance: DEXTROSE\SODIUM CHLORIDE\SODIUM LACTATE
     Dates: start: 20161208, end: 20170117
  44. HOKUNALIN:TAPE [Concomitant]
     Active Substance: TULOBUTEROL
     Dates: start: 20161225, end: 20170117
  45. NICARDIPINE HYDROCHLORIDE. [Concomitant]
     Active Substance: NICARDIPINE HYDROCHLORIDE
     Dates: start: 20161227, end: 20170112
  46. PRIMPERAN [Concomitant]
     Active Substance: METOCLOPRAMIDE HYDROCHLORIDE
     Dates: start: 20170112, end: 20170116
  47. SOSEGON [Concomitant]
     Active Substance: PENTAZOCINE
     Dates: start: 20170208, end: 20170210
  48. GABEXATE MESILATE [Concomitant]
     Active Substance: GABEXATE MESYLATE
     Dates: start: 20170208, end: 20170212
  49. ZOSYN INJECTION [Concomitant]
     Indication: PNEUMONIA
     Route: 065
     Dates: start: 20161201, end: 20161205
  50. VITAMEDIN INJECTION [Concomitant]
     Indication: EATING DISORDER
     Route: 065
     Dates: start: 20161224, end: 20161229
  51. ELNEOPA NO.1 INJECTION [Concomitant]
     Indication: EATING DISORDER
     Route: 065
     Dates: start: 20161230, end: 20170110
  52. ZITHROMAC SR [Concomitant]
     Active Substance: AZITHROMYCIN DIHYDRATE
     Indication: OROPHARYNGEAL PAIN
     Dates: start: 20161128, end: 20161128
  53. VEEN-D [Concomitant]
     Active Substance: DEXTROSE
     Indication: DEHYDRATION
     Dates: start: 20161206, end: 20170207
  54. GLYCERIN. [Concomitant]
     Active Substance: GLYCERIN
     Indication: CONSTIPATION
     Dates: start: 20161210, end: 20170122
  55. ROZEREM [Concomitant]
     Active Substance: RAMELTEON
     Dates: start: 20161228, end: 20170109
  56. OLMETEC [Concomitant]
     Active Substance: OLMESARTAN MEDOXOMIL
     Dates: start: 20161229, end: 20170109
  57. SALIVEHT AEROSOL (SPRAY AND INHALATION) [Concomitant]
     Dates: start: 20170123, end: 20170123
  58. FLUCONAZOLE. [Concomitant]
     Active Substance: FLUCONAZOLE
     Indication: PROPHYLAXIS
     Dates: start: 20170123, end: 20170604
  59. PROSTAL [Concomitant]
     Active Substance: CHLORMADINONE ACETATE
     Dates: start: 20170127, end: 20170604
  60. COSPANON [Concomitant]
     Active Substance: FLOPROPIONE
     Dates: start: 20170209, end: 20170604
  61. HICALIQ INJECTION [Concomitant]
     Indication: EATING DISORDER
     Route: 065
     Dates: start: 20161213, end: 20161223
  62. UNASYN [Concomitant]
     Active Substance: AMPICILLIN SODIUM\SULBACTAM SODIUM
     Indication: OROPHARYNGEAL PAIN
     Dates: start: 20161128, end: 20161130
  63. HACHIAZULE/XYLOCAINE (CONTAINING GLYCERINE) [Concomitant]
     Indication: OROPHARYNGEAL PAIN
     Dates: start: 20161202, end: 20161205
  64. TAKECAB [Concomitant]
     Active Substance: VONOPRAZAN FUMURATE
     Dates: start: 20170213, end: 20170604
  65. SODIUM PICOSULFATE HYDRATE SOLUTION (EXCEPT SYRUP) [Concomitant]
     Dates: start: 20170321, end: 20170502
  66. FILGRASTIM BS INJ. 150MCG SYRINGE [Suspect]
     Active Substance: FILGRASTIM
     Dosage: 50 UG/M2 DAILY;
     Route: 058
     Dates: start: 20170120, end: 20170126
  67. FILGRASTIM BS INJ. 150MCG SYRINGE [Suspect]
     Active Substance: FILGRASTIM
     Dosage: 50 UG/M2 DAILY;
     Route: 058
     Dates: start: 20170130
  68. GLUCOSE INJECTION [Concomitant]
     Active Substance: DEXTROSE
     Indication: EATING DISORDER
     Route: 065
     Dates: start: 20161219, end: 20170110
  69. KCL CORRECTIVE INJECTION [Concomitant]
     Indication: EATING DISORDER
     Route: 065
     Dates: start: 20161219, end: 20171125
  70. BAKTAR [Concomitant]
     Active Substance: SULFAMETHOXAZOLE\TRIMETHOPRIM
     Indication: PNEUMONIA
     Dates: start: 20161110, end: 20170604
  71. MIYA-BM [Concomitant]
     Active Substance: CLOSTRIDIUM BUTYRICUM SPORES STRAIN M-55
     Indication: CONSTIPATION
     Dates: start: 20161117, end: 20161120
  72. TRIMEBUTINE MALEATE [Concomitant]
     Active Substance: TRIMEBUTINE MALEATE
     Dates: start: 20170113, end: 20170205
  73. ITOPRIDE HYDROCHLORIDE [Concomitant]
     Active Substance: ITOPRIDE HYDROCHLORIDE
     Dates: start: 20170115, end: 20170604
  74. TAKEPRON [Concomitant]
     Active Substance: LANSOPRAZOLE
     Dates: start: 20170117, end: 20170120
  75. FILGRASTIM BS INJ. 150MCG SYRINGE [Suspect]
     Active Substance: FILGRASTIM
     Indication: MYELODYSPLASTIC SYNDROME
     Dosage: 100 UG/M2 DAILY;
     Route: 058
     Dates: start: 20170116, end: 20170119
  76. FILGRASTIM BS INJ. 150MCG SYRINGE [Suspect]
     Active Substance: FILGRASTIM
     Dosage: 50 UG/M2 DAILY;
     Route: 058
     Dates: start: 20170128, end: 20170128
  77. SOLYUGEN F INJECTION [Concomitant]
     Indication: METABOLIC ACIDOSIS
     Route: 065
     Dates: start: 20161201, end: 20161206
  78. MEROPENEM HYDRATE INJECTION [Concomitant]
     Indication: PROPHYLAXIS
     Route: 065
     Dates: start: 20161205, end: 20161216
  79. VITAJECT INJECTION [Concomitant]
     Indication: EATING DISORDER
     Route: 065
     Dates: start: 20161213, end: 20161221
  80. AUGMENTIN [Concomitant]
     Active Substance: AMOXICILLIN\CLAVULANATE POTASSIUM
     Indication: OROPHARYNGEAL PAIN
     Dates: start: 20161117, end: 20161128
  81. TRANEXAMIC ACID C [Concomitant]
     Active Substance: TRANEXAMIC ACID
     Indication: OROPHARYNGEAL PAIN
     Dates: start: 20161128, end: 20161130
  82. POLYFUL [Concomitant]
     Active Substance: CALCIUM POLYCARBOPHIL
     Dates: start: 20170121, end: 20170205
  83. FUNGIZONE [Concomitant]
     Active Substance: AMPHOTERICIN B
     Dates: start: 20170123, end: 20170128
  84. FLORID [Concomitant]
     Active Substance: MICONAZOLE
     Indication: ORAL CANDIDIASIS
     Dates: start: 20170127, end: 20170205

REACTIONS (2)
  - Acute kidney injury [Recovering/Resolving]
  - Schizophrenia [Recovering/Resolving]

NARRATIVE: CASE EVENT DATE: 20161210
